FAERS Safety Report 24140421 (Version 14)
Quarter: 2025Q4

REPORT INFORMATION
  Report Type: Report from Study
  Country: CN (occurrence: CN)
  Receive Date: 20240726
  Receipt Date: 20251216
  Transmission Date: 20260118
  Serious: Yes (Life-Threatening, Other)
  Sender: ROCHE
  Company Number: CN-ROCHE-10000033356

PATIENT
  Age: 51 Year
  Sex: Female
  Weight: 63.7 kg

DRUGS (110)
  1. POLATUZUMAB VEDOTIN [Suspect]
     Active Substance: POLATUZUMAB VEDOTIN
     Indication: Diffuse large B-cell lymphoma
     Route: 041
     Dates: end: 20240406
  2. POLATUZUMAB VEDOTIN [Suspect]
     Active Substance: POLATUZUMAB VEDOTIN
     Route: 041
     Dates: end: 20240429
  3. POLATUZUMAB VEDOTIN [Suspect]
     Active Substance: POLATUZUMAB VEDOTIN
     Route: 041
     Dates: end: 20240521
  4. POLATUZUMAB VEDOTIN [Suspect]
     Active Substance: POLATUZUMAB VEDOTIN
     Route: 041
     Dates: end: 20240612
  5. VINCRISTINE [Suspect]
     Active Substance: VINCRISTINE
     Indication: Diffuse large B-cell lymphoma
     Route: 041
     Dates: end: 20240408
  6. VINCRISTINE [Suspect]
     Active Substance: VINCRISTINE
     Route: 041
     Dates: end: 20240504
  7. VINCRISTINE [Suspect]
     Active Substance: VINCRISTINE
     Route: 041
     Dates: end: 20240526
  8. VINCRISTINE [Suspect]
     Active Substance: VINCRISTINE
     Route: 041
     Dates: end: 20240614
  9. RITUXIMAB [Suspect]
     Active Substance: RITUXIMAB
     Indication: Diffuse large B-cell lymphoma
     Dosage: START DATE 07-APR-2024
     Route: 041
     Dates: end: 20240407
  10. RITUXIMAB [Suspect]
     Active Substance: RITUXIMAB
     Dosage: START DATE AND END DATE 30-APR-2024
     Route: 041
     Dates: end: 20240430
  11. RITUXIMAB [Suspect]
     Active Substance: RITUXIMAB
     Route: 041
     Dates: end: 20240523
  12. RITUXIMAB [Suspect]
     Active Substance: RITUXIMAB
     Dosage: START DATE 07-JUL-2024
     Route: 041
     Dates: end: 20240707
  13. RITUXIMAB [Suspect]
     Active Substance: RITUXIMAB
     Dosage: START DATE AND END DATE 11-JUN-2024
     Route: 041
  14. ZANUBRUTINIB [Suspect]
     Active Substance: ZANUBRUTINIB
     Indication: Diffuse large B-cell lymphoma
     Route: 048
     Dates: end: 20240411
  15. ZANUBRUTINIB [Suspect]
     Active Substance: ZANUBRUTINIB
     Route: 041
     Dates: end: 20240520
  16. ZANUBRUTINIB [Suspect]
     Active Substance: ZANUBRUTINIB
     Route: 048
     Dates: end: 20240608
  17. ZANUBRUTINIB [Suspect]
     Active Substance: ZANUBRUTINIB
     Route: 041
     Dates: end: 20240609
  18. CYCLOPHOSPHAMIDE [Suspect]
     Active Substance: CYCLOPHOSPHAMIDE
     Indication: Diffuse large B-cell lymphoma
     Dosage: START DATE 04-APR-2024
     Route: 041
     Dates: end: 20240404
  19. CYCLOPHOSPHAMIDE [Suspect]
     Active Substance: CYCLOPHOSPHAMIDE
     Route: 041
     Dates: end: 20240405
  20. CYCLOPHOSPHAMIDE [Suspect]
     Active Substance: CYCLOPHOSPHAMIDE
     Dosage: START DATE 04-APR-2024
     Route: 041
     Dates: end: 20240501
  21. CYCLOPHOSPHAMIDE [Suspect]
     Active Substance: CYCLOPHOSPHAMIDE
     Route: 041
     Dates: end: 20240524
  22. CYCLOPHOSPHAMIDE [Suspect]
     Active Substance: CYCLOPHOSPHAMIDE
     Route: 041
     Dates: end: 20240612
  23. DOXORUBICIN HYDROCHLORIDE [Suspect]
     Active Substance: DOXORUBICIN HYDROCHLORIDE
     Indication: Diffuse large B-cell lymphoma
     Route: 041
     Dates: end: 20240405
  24. DOXORUBICIN HYDROCHLORIDE [Suspect]
     Active Substance: DOXORUBICIN HYDROCHLORIDE
     Dosage: DRUG STAR DATE 04-APR-2024
     Route: 041
     Dates: end: 20240405
  25. DOXORUBICIN HYDROCHLORIDE [Suspect]
     Active Substance: DOXORUBICIN HYDROCHLORIDE
     Dosage: DRUG STAR DATE 04-APR-2024
     Route: 041
     Dates: end: 20240502
  26. DOXORUBICIN HYDROCHLORIDE [Suspect]
     Active Substance: DOXORUBICIN HYDROCHLORIDE
     Dosage: DRUG STAR DATE 04-APR-2024
     Route: 041
     Dates: end: 20240525
  27. DOXORUBICIN HYDROCHLORIDE [Suspect]
     Active Substance: DOXORUBICIN HYDROCHLORIDE
     Route: 041
     Dates: end: 20240602
  28. DOXORUBICIN HYDROCHLORIDE [Suspect]
     Active Substance: DOXORUBICIN HYDROCHLORIDE
     Route: 041
  29. VINCRISTINE [Suspect]
     Active Substance: VINCRISTINE
     Indication: Diffuse large B-cell lymphoma
     Route: 041
     Dates: end: 20240405
  30. VINCRISTINE [Suspect]
     Active Substance: VINCRISTINE
     Route: 041
     Dates: end: 20240430
  31. METHYLPREDNISOLONE [Suspect]
     Active Substance: METHYLPREDNISOLONE
     Indication: Diffuse large B-cell lymphoma
     Dosage: START DATE 04-APR-2024
     Route: 041
     Dates: end: 20240408
  32. METHYLPREDNISOLONE [Suspect]
     Active Substance: METHYLPREDNISOLONE
     Dosage: START DATE
     Route: 041
     Dates: end: 20240504
  33. METHOTREXATE [Suspect]
     Active Substance: METHOTREXATE
     Indication: Diffuse large B-cell lymphoma
     Route: 041
     Dates: end: 20240404
  34. METHOTREXATE [Suspect]
     Active Substance: METHOTREXATE
     Route: 041
  35. METHOTREXATE [Suspect]
     Active Substance: METHOTREXATE
     Route: 041
     Dates: end: 20240525
  36. LORNOXICAM [Suspect]
     Active Substance: LORNOXICAM
     Indication: Diffuse large B-cell lymphoma
     Route: 041
     Dates: end: 20240501
  37. DOXORUBICIN HYDROCHLORIDE [Suspect]
     Active Substance: DOXORUBICIN HYDROCHLORIDE
     Indication: Diffuse large B-cell lymphoma
     Route: 041
  38. ROXADUSTAT [Concomitant]
     Active Substance: ROXADUSTAT
     Route: 048
     Dates: start: 20240530
  39. Acetyl cysteine solution for inhalation [Concomitant]
     Route: 055
     Dates: start: 20240331, end: 20240331
  40. Acetyl cysteine solution for inhalation [Concomitant]
     Route: 055
     Dates: start: 20240401, end: 20240401
  41. Acetyl cysteine solution for inhalation [Concomitant]
     Route: 055
     Dates: start: 20240403, end: 20240403
  42. CEFTAZIDIME [Concomitant]
     Active Substance: CEFTAZIDIME
     Route: 041
     Dates: start: 20240331, end: 20240331
  43. CEFTAZIDIME [Concomitant]
     Active Substance: CEFTAZIDIME
     Route: 041
     Dates: start: 20240401, end: 20240403
  44. Omeprazole sodium for injection [Concomitant]
     Route: 041
     Dates: start: 20240401, end: 20240401
  45. Omeprazole sodium for injection [Concomitant]
     Route: 041
     Dates: start: 20240402, end: 20240408
  46. Magnesium isoglycyrrhizinate inj [Concomitant]
     Route: 041
     Dates: start: 20240401, end: 20240401
  47. Magnesium isoglycyrrhizinate inj [Concomitant]
     Route: 041
     Dates: start: 20240402, end: 20240408
  48. Magnesium isoglycyrrhizinate inj [Concomitant]
     Route: 041
     Dates: start: 20240410, end: 20240410
  49. Magnesium isoglycyrrhizinate inj [Concomitant]
     Route: 041
     Dates: start: 20240411, end: 20240412
  50. Reduced glutathione for injection [Concomitant]
     Route: 041
     Dates: start: 20240401, end: 20240401
  51. Reduced glutathione for injection [Concomitant]
     Route: 041
     Dates: start: 20240402, end: 20240412
  52. Vitamin B6 inj [Concomitant]
     Route: 041
     Dates: start: 20240402, end: 20240403
  53. Vitamin B6 inj [Concomitant]
     Route: 041
     Dates: start: 20240404, end: 20240405
  54. Vitamin B6 inj [Concomitant]
     Route: 041
     Dates: start: 20240404, end: 20240406
  55. Vitamin B6 inj [Concomitant]
     Route: 041
     Dates: start: 20240610, end: 20240612
  56. SODIUM BICARBONATE [Concomitant]
     Active Substance: SODIUM BICARBONATE
     Route: 041
     Dates: start: 20240402, end: 20240412
  57. SODIUM BICARBONATE [Concomitant]
     Active Substance: SODIUM BICARBONATE
     Route: 041
     Dates: start: 20240608, end: 20240618
  58. isosorbide nitrate injection [Concomitant]
     Route: 041
     Dates: start: 20240401, end: 20240401
  59. isosorbide nitrate injection [Concomitant]
     Route: 041
     Dates: start: 20240402, end: 20240412
  60. MEROPENEM [Concomitant]
     Active Substance: MEROPENEM
     Route: 041
  61. MEROPENEM [Concomitant]
     Active Substance: MEROPENEM
     Route: 041
     Dates: start: 20240403, end: 20240412
  62. Compound acetaminophen tablets [Concomitant]
     Route: 041
     Dates: start: 20240404, end: 20240406
  63. PROMETHAZINE [Concomitant]
     Active Substance: PROMETHAZINE HYDROCHLORIDE
     Route: 030
     Dates: start: 20240404, end: 20240406
  64. PROMETHAZINE [Concomitant]
     Active Substance: PROMETHAZINE HYDROCHLORIDE
     Route: 030
     Dates: start: 20240610, end: 20240612
  65. LEUCOVORIN CALCIUM [Concomitant]
     Active Substance: LEUCOVORIN CALCIUM
     Route: 041
     Dates: start: 20240405, end: 20240410
  66. Potassium chloride sustained-release tablets [Concomitant]
     Route: 041
  67. Potassium chloride sustained-release tablets [Concomitant]
     Route: 048
     Dates: start: 20240405, end: 20240405
  68. Potassium chloride sustained-release tablets [Concomitant]
     Route: 048
     Dates: start: 20240406, end: 20240410
  69. Potassium chloride sustained-release tablets [Concomitant]
     Route: 041
     Dates: start: 20240610, end: 20240610
  70. Potassium chloride sustained-release tablets [Concomitant]
     Route: 041
     Dates: start: 20240612, end: 20240612
  71. Promethazine needle [Concomitant]
     Route: 030
     Dates: start: 20240406, end: 20240407
  72. Promethazine needle [Concomitant]
     Route: 030
     Dates: start: 20240411, end: 20240411
  73. FEBUXOSTAT [Concomitant]
     Active Substance: FEBUXOSTAT
     Route: 048
     Dates: start: 20240407, end: 20240407
  74. FEBUXOSTAT [Concomitant]
     Active Substance: FEBUXOSTAT
     Route: 048
     Dates: start: 20240408, end: 20240411
  75. Levamlodipine besylate tablets [Concomitant]
     Route: 048
     Dates: start: 20240407, end: 20240407
  76. Levamlodipine besylate tablets [Concomitant]
     Route: 048
     Dates: start: 20240408, end: 20240412
  77. Recombinant human thrombopoietin injection [Concomitant]
     Route: 058
     Dates: start: 20240409, end: 20240412
  78. Mecobalamine injection [Concomitant]
     Route: 030
     Dates: start: 20240408, end: 20240408
  79. Mecobalamine injection [Concomitant]
     Route: 030
     Dates: start: 20240409, end: 20240412
  80. Metoprolol succinate sustained release tablets [Concomitant]
     Route: 048
     Dates: start: 20240409, end: 20240409
  81. Metoprolol succinate sustained release tablets [Concomitant]
     Route: 048
     Dates: start: 20240410, end: 20240410
  82. Metoprolol succinate sustained release tablets [Concomitant]
     Route: 048
  83. Fluconazole sodium chloride injection [Concomitant]
     Route: 041
     Dates: start: 20240409, end: 20240409
  84. Fluconazole sodium chloride injection [Concomitant]
     Route: 041
     Dates: start: 20240410, end: 20240412
  85. VANCOMYCIN HYDROCHLORIDE [Concomitant]
     Active Substance: VANCOMYCIN HYDROCHLORIDE
     Route: 041
     Dates: start: 20240412, end: 20240412
  86. Nifedipine tablets [Concomitant]
  87. Mannitol injection [Concomitant]
     Route: 041
     Dates: start: 20240401, end: 20240401
  88. Anso (Enteral Nutrition Powder) [Concomitant]
     Dates: start: 20240401, end: 20240401
  89. LIDOCAINE HYDROCHLORIDE [Concomitant]
     Active Substance: LIDOCAINE HYDROCHLORIDE
     Route: 058
     Dates: start: 20240401, end: 20240401
  90. LIDOCAINE HYDROCHLORIDE [Concomitant]
     Active Substance: LIDOCAINE HYDROCHLORIDE
     Route: 058
     Dates: start: 20240407, end: 20240407
  91. Imipenem/Cilastatin sodium salt needle [Concomitant]
     Route: 041
  92. Palonosetron hydrochloride capsules [Concomitant]
     Route: 048
     Dates: start: 20240403, end: 20240403
  93. Palonosetron hydrochloride capsules [Concomitant]
     Route: 048
     Dates: start: 20240609, end: 20240609
  94. DEXAMETHASONE SODIUM PHOSPHATE [Concomitant]
     Active Substance: DEXAMETHASONE SODIUM PHOSPHATE
     Route: 037
     Dates: start: 20240408, end: 20240408
  95. DEXAMETHASONE SODIUM PHOSPHATE [Concomitant]
     Active Substance: DEXAMETHASONE SODIUM PHOSPHATE
     Route: 037
     Dates: start: 20240614, end: 20240614
  96. FUROSEMIDE [Concomitant]
     Active Substance: FUROSEMIDE
     Route: 042
     Dates: start: 20240407, end: 20240407
  97. Aureomycin hydrochloride eye ointment [Concomitant]
  98. Chlorhexidine gargle compound [Concomitant]
     Dates: start: 20240409, end: 20240409
  99. ENTECAVIR [Concomitant]
     Active Substance: ENTECAVIR
     Route: 048
     Dates: start: 20240609, end: 20240706
  100. ENTECAVIR [Concomitant]
     Active Substance: ENTECAVIR
     Route: 048
     Dates: start: 20240714, end: 20240810
  101. Amifostine injection [Concomitant]
     Route: 041
     Dates: start: 20240403, end: 20240412
  102. METHANDROSTENOLONE [Concomitant]
     Active Substance: METHANDROSTENOLONE
     Dates: start: 20240430, end: 20240504
  103. Omeprazole Enteric-coated Capsules [Concomitant]
     Route: 048
     Dates: start: 20240609, end: 20240618
  104. Thrombin powder [Concomitant]
     Dates: start: 20240401, end: 20240402
  105. Compound paracetamol tablets [Concomitant]
     Route: 048
     Dates: start: 20240610, end: 20240612
  106. LACTATED RINGERS SOLUTION [Concomitant]
     Active Substance: CALCIUM CHLORIDE\POTASSIUM CHLORIDE\SODIUM CHLORIDE\SODIUM LACTATE
     Route: 041
     Dates: start: 20240612, end: 20240618
  107. SULFAMETHOXAZOLE [Concomitant]
     Active Substance: SULFAMETHOXAZOLE
     Route: 048
     Dates: start: 20240609, end: 20240916
  108. METOCLOPRAMIDE HYDROCHLORIDE [Concomitant]
     Active Substance: METOCLOPRAMIDE HYDROCHLORIDE
     Route: 041
     Dates: start: 20240609, end: 20240609
  109. GRANULOCYTE COLONY-STIMULATING FACTOR NOS [Concomitant]
     Active Substance: GRANULOCYTE COLONY-STIMULATING FACTOR NOS
  110. METHYLPREDNISOLONE SODIUM SUCCINATE [Concomitant]
     Active Substance: METHYLPREDNISOLONE SODIUM SUCCINATE

REACTIONS (15)
  - Hypomagnesaemia [Recovered/Resolved]
  - Renal failure [Recovered/Resolved]
  - Hypernatraemia [Recovered/Resolved]
  - Hypokalaemia [Recovered/Resolved]
  - Hypocalcaemia [Recovered/Resolved]
  - Lymphocyte count abnormal [Not Recovered/Not Resolved]
  - Anaemia [Not Recovered/Not Resolved]
  - Platelet count decreased [Recovered/Resolved]
  - Myelosuppression [Recovered/Resolved]
  - Hypermagnesaemia [Recovered/Resolved]
  - Alanine aminotransferase increased [Recovered/Resolved]
  - White blood cell count decreased [Recovered/Resolved]
  - Lymphocyte count decreased [Not Recovered/Not Resolved]
  - Eyelid disorder [Not Recovered/Not Resolved]
  - Sinus tachycardia [Not Recovered/Not Resolved]

NARRATIVE: CASE EVENT DATE: 20240403
